FAERS Safety Report 7937718-X (Version None)
Quarter: 2011Q4

REPORT INFORMATION
  Report Type: 
  Country: None (occurrence: None)
  Receive Date: 20111123
  Receipt Date: 20111116
  Transmission Date: 20120403
  Serious: Yes (Other)
  Sender: FDA-Public Use
  Company Number: PHHY2011FR101980

PATIENT
  Age: 71 Year
  Sex: Female

DRUGS (2)
  1. ZOLEDRONOC ACID [Suspect]
     Indication: OSTEOPOROSIS POSTMENOPAUSAL
     Route: 042
     Dates: start: 20111115
  2. ST. JOHN'S WORT [Concomitant]

REACTIONS (7)
  - PAIN IN JAW [None]
  - INSOMNIA [None]
  - PYREXIA [None]
  - CHEST PAIN [None]
  - SCIATICA [None]
  - CHILLS [None]
  - DIZZINESS [None]
